FAERS Safety Report 8576239-0 (Version None)
Quarter: 2012Q3

REPORT INFORMATION
  Report Type: 
  Country: None (occurrence: None)
  Receive Date: 20120807
  Receipt Date: 20120807
  Transmission Date: 20120928
  Serious: Yes (Other)
  Sender: FDA-Public Use
  Company Number: GB-PFIZER INC-2012181121

PATIENT
  Age: 81 Year
  Sex: Male
  Weight: 65 kg

DRUGS (10)
  1. GENTAMICIN [Suspect]
     Indication: ANTIBIOTIC PROPHYLAXIS
     Dosage: 1 DOSE
     Route: 042
  2. MEBEVERINE [Concomitant]
     Indication: IRRITABLE BOWEL SYNDROME
     Dosage: LONG TERM
     Route: 048
  3. FELODIPINE [Concomitant]
     Indication: HYPERTENSION
     Dosage: LONG TERM
     Route: 048
  4. PIROXICAM [Suspect]
     Indication: POSTOPERATIVE ANALGESIA
     Dosage: MELT
     Route: 048
     Dates: start: 20120502, end: 20120507
  5. OMEPRAZOLE [Concomitant]
     Indication: GASTRIC PH DECREASED
     Dosage: LONG TERM
     Route: 048
  6. QUININE SULFATE [Concomitant]
     Indication: MUSCLE SPASMS
     Dosage: AT NIGHT, LONG TERM
     Route: 048
  7. METRONIDAZOLE [Concomitant]
     Indication: PROPHYLAXIS
     Dosage: 1 X PRE-OPERATIVE DOSE
     Route: 042
  8. DOMPERIDONE [Concomitant]
     Indication: PROCEDURAL NAUSEA
     Dosage: STOPPED AT DISCHARGE
     Route: 048
     Dates: start: 20120502
  9. SIMVASTATIN [Concomitant]
     Indication: BLOOD CHOLESTEROL INCREASED
     Dosage: AT NIGHT, LONG TERM
     Route: 048
  10. ACETYLSALICYLIC ACID [Concomitant]
     Indication: ANTIPLATELET THERAPY
     Dosage: LONG TERM
     Route: 048
     Dates: end: 20120505

REACTIONS (2)
  - BLOOD CREATININE INCREASED [None]
  - RENAL FAILURE ACUTE [None]
